FAERS Safety Report 8434499-0 (Version None)
Quarter: 2012Q2

REPORT INFORMATION
  Report Type: 
  Country: None (occurrence: None)
  Receive Date: 20120614
  Receipt Date: 20120606
  Transmission Date: 20120825
  Serious: No
  Sender: FDA-Public Use
  Company Number: US-BIOGENIDEC-2012BI018815

PATIENT
  Sex: Female

DRUGS (3)
  1. CIPROFLOXACIN HCL [Concomitant]
     Indication: BACTERIAL INFECTION
  2. AMOXICILLIN [Concomitant]
     Indication: BACTERIAL INFECTION
  3. TYSABRI [Suspect]
     Indication: MULTIPLE SCLEROSIS
     Route: 042
     Dates: start: 20070813

REACTIONS (3)
  - VULVOVAGINAL BURNING SENSATION [None]
  - STAPHYLOCOCCAL INFECTION [None]
  - BACTERIAL INFECTION [None]
